FAERS Safety Report 5096606-X (Version None)
Quarter: 2006Q3

REPORT INFORMATION
  Report Type: 
  Country: None (occurrence: None)
  Receive Date: 20060830
  Receipt Date: 20060810
  Transmission Date: 20061208
  Serious: Yes (Other)
  Sender: FDA-Public Use
  Company Number: 2006102231

PATIENT
  Age: 24 Year
  Sex: Female

DRUGS (3)
  1. VIRACEPT [Suspect]
     Indication: HIV INFECTION
     Dosage: 3 GRAM, ORAL
     Route: 048
     Dates: start: 20060224, end: 20060320
  2. LAMIVUDINE [Concomitant]
  3. ZIDOVUDINE [Concomitant]

REACTIONS (2)
  - DRUG EXPOSURE DURING PREGNANCY [None]
  - LABOUR ONSET DELAYED [None]
